FAERS Safety Report 8588804-5 (Version None)
Quarter: 2012Q3

REPORT INFORMATION
  Report Type: 
  Country: None (occurrence: None)
  Receive Date: 20120813
  Receipt Date: 20120809
  Transmission Date: 20120928
  Serious: Yes (Life-Threatening, Hospitalization)
  Sender: FDA-Public Use
  Company Number: PHHY2012CR069350

PATIENT
  Sex: Female

DRUGS (2)
  1. TRILEPTAL [Suspect]
     Dosage: 90 MG, BID
     Route: 048
     Dates: start: 20111102
  2. VALPROATE SODIUM [Concomitant]

REACTIONS (3)
  - HYPONATRAEMIA [None]
  - APPARENT LIFE THREATENING EVENT [None]
  - INAPPROPRIATE ANTIDIURETIC HORMONE SECRETION [None]
